FAERS Safety Report 25841358 (Version 1)
Quarter: 2025Q3

REPORT INFORMATION
  Report Type: Spontaneous
  Country: US (occurrence: US)
  Receive Date: 20250924
  Receipt Date: 20250924
  Transmission Date: 20251020
  Serious: Yes (Other)
  Sender: AMGEN
  Company Number: US-AMGEN-USASP2025187358

PATIENT
  Age: 53 Year
  Sex: Female

DRUGS (65)
  1. TEPEZZA [Suspect]
     Active Substance: TEPROTUMUMAB-TRBW
     Indication: Endocrine ophthalmopathy
     Dosage: 660 MILLIGRAM, Q3WK (10 MG/KG) (FIRST INFUSION)
     Route: 040
     Dates: start: 20201123, end: 20201123
  2. TEPEZZA [Suspect]
     Active Substance: TEPROTUMUMAB-TRBW
     Indication: Toxic goitre
     Dosage: 1260 MILLIGRAM, Q3WK (20 MG/KG) (SECOND INFUSION)
     Route: 040
     Dates: start: 20201214, end: 20201214
  3. TEPEZZA [Suspect]
     Active Substance: TEPROTUMUMAB-TRBW
     Dosage: 1290 MILLIGRAM, Q3WK (20 MG/KG) (THIRD INFUSION)
     Route: 040
     Dates: start: 20210118, end: 20210118
  4. TEPEZZA [Suspect]
     Active Substance: TEPROTUMUMAB-TRBW
     Dosage: 1240 MILLIGRAM, Q3WK  (20 MG/KG) (FOURTH INFUSION)
     Route: 040
     Dates: start: 20210426, end: 20210426
  5. TEPEZZA [Suspect]
     Active Substance: TEPROTUMUMAB-TRBW
     Dosage: 1220 MILLIGRAM, Q3WK (20 MG/KG) (FIFTH INFUSION)
     Route: 040
     Dates: start: 20210517, end: 20210517
  6. TEPEZZA [Suspect]
     Active Substance: TEPROTUMUMAB-TRBW
     Dosage: 1200 MILLIGRAM, Q3WK (20 MG/KG) (SIXTH INFUSION)
     Route: 040
     Dates: start: 20210607, end: 20210607
  7. TEPEZZA [Suspect]
     Active Substance: TEPROTUMUMAB-TRBW
     Dosage: 1180 MILLIGRAM, Q3WK (20 MG/KG) (SEVENTH INFUSION)
     Route: 040
     Dates: start: 20210628, end: 20210628
  8. TEPEZZA [Suspect]
     Active Substance: TEPROTUMUMAB-TRBW
     Dosage: 1160 MILLIGRAM, Q3WK (20 MG/KG) (EIGHTH INFUSION)
     Route: 040
     Dates: start: 20210719, end: 20210719
  9. LIPITOR [Concomitant]
     Active Substance: ATORVASTATIN CALCIUM
     Route: 065
  10. PRINIVIL [Concomitant]
     Active Substance: LISINOPRIL
     Dosage: 2.5 MILLIGRAM, QD (BEDTIME)
     Route: 048
     Dates: start: 20190827
  11. ZESTRIL [Concomitant]
     Active Substance: LISINOPRIL
     Dosage: 2.5 MILLIGRAM, QD (BEDTIME)
     Route: 048
     Dates: start: 20190827
  12. REQUIP [Concomitant]
     Active Substance: ROPINIROLE HYDROCHLORIDE
     Route: 065
     Dates: start: 20191218
  13. LEVOXYL [Concomitant]
     Active Substance: LEVOTHYROXINE SODIUM
     Dosage: 100 MICROGRAM, QD (1 TIME DAILY FOR 6 DAYS PER WEEK)
     Route: 048
     Dates: start: 20200521, end: 20220603
  14. SYNTHROID [Concomitant]
     Active Substance: LEVOTHYROXINE SODIUM
     Dosage: 100 MICROGRAM, QD (1 TIME DAILY FOR 6 DAYS PER WEEK)
     Route: 048
     Dates: start: 20050330, end: 20210413
  15. SYNTHROID [Concomitant]
     Active Substance: LEVOTHYROXINE SODIUM
     Dosage: 100 MICROGRAM, QD (1 TIME DAILY FOR 6 DAYS PER WEEK)
     Route: 048
     Dates: start: 20200521, end: 20220603
  16. IMVEXXY [Concomitant]
     Active Substance: ESTRADIOL
     Route: 065
     Dates: start: 20190916
  17. VITAMIN B12 [Concomitant]
     Active Substance: CYANOCOBALAMIN
     Route: 065
  18. REFRESH PLUS [Concomitant]
     Active Substance: CARBOXYMETHYLCELLULOSE SODIUM
     Route: 047
     Dates: start: 20031008
  19. REFRESH P.M. [Concomitant]
     Active Substance: MINERAL OIL\PETROLATUM
     Dosage: UNK, QHS
     Route: 047
     Dates: start: 20030721
  20. MINERALS\VITAMINS [Concomitant]
     Active Substance: MINERALS\VITAMINS
     Route: 065
  21. MIRALAX [Concomitant]
     Active Substance: POLYETHYLENE GLYCOL 3350
     Dosage: 17 GRAM, QD
     Route: 048
  22. BASAGLAR KWIKPEN [Concomitant]
     Active Substance: INSULIN GLARGINE
     Dosage: 24 UNIT, QD ( 100 UNIT/ML PEN-INJECTOR)
     Route: 065
     Dates: start: 20201211
  23. HUMALOG [Concomitant]
     Active Substance: INSULIN LISPRO
     Route: 058
     Dates: start: 20041227
  24. HUMALOG [Concomitant]
     Active Substance: INSULIN LISPRO
     Route: 065
     Dates: start: 20201211
  25. HUMALOG [Concomitant]
     Active Substance: INSULIN LISPRO
     Route: 058
     Dates: end: 20210506
  26. FLEXERIL [Concomitant]
     Active Substance: CYCLOBENZAPRINE HYDROCHLORIDE
     Dosage: 5 MILLIGRAM, QD
     Route: 048
     Dates: start: 20210121, end: 20210429
  27. SYSTANE (HYPROMELLOSE 2910 (4000 MPA.S)) [Concomitant]
     Active Substance: HYPROMELLOSE 2910 (4000 MPA.S)
     Dosage: UNK UNK, QID (0.4-0.3 %)
     Route: 047
     Dates: start: 20031008
  28. ZOCOR [Concomitant]
     Active Substance: SIMVASTATIN
     Route: 048
     Dates: start: 20050524, end: 20230731
  29. LANTUS [Concomitant]
     Active Substance: INSULIN GLARGINE
     Route: 058
     Dates: start: 20050711, end: 20210122
  30. CALCIUM\VITAMIN D [Concomitant]
     Active Substance: CALCIUM\VITAMIN D
     Dosage: UNK UNK, QD (600-200 MG-UNIT)
     Route: 048
     Dates: start: 20050711
  31. VITAMINS [Concomitant]
     Active Substance: VITAMINS
     Dosage: UNK UNK, QD
     Route: 048
     Dates: start: 20050711
  32. DOCUSATE SODIUM [Concomitant]
     Active Substance: DOCUSATE SODIUM
     Route: 048
     Dates: start: 20050711, end: 20210527
  33. LISINOPRIL [Concomitant]
     Active Substance: LISINOPRIL
     Dosage: 5 MILLIGRAM, QD
     Route: 048
     Dates: start: 20020721, end: 20250221
  34. DEXAMETHASONE [Concomitant]
     Active Substance: DEXAMETHASONE
     Indication: Endocrine ophthalmopathy
     Route: 065
  35. LEVOTHYROXINE [Concomitant]
     Active Substance: LEVOTHYROXINE
     Route: 065
  36. SELENIUM [Concomitant]
     Active Substance: SELENIUM
     Dosage: 200 MICROGRAM, QD
     Route: 048
  37. GLUCAGON [Concomitant]
     Active Substance: GLUCAGON
     Route: 065
     Dates: start: 20210223
  38. NEXPLANON [Concomitant]
     Active Substance: ETONOGESTREL
     Route: 065
  39. INFLUENZA VIRUS VACCINE [Concomitant]
     Active Substance: INFLUENZA VIRUS VACCINE
     Route: 065
     Dates: start: 20211013
  40. GVOKE [Concomitant]
     Active Substance: GLUCAGON
     Indication: Blood glucose decreased
     Route: 065
     Dates: start: 20210330, end: 20230313
  41. PROBIOTICS NOS [Concomitant]
     Active Substance: PROBIOTICS NOS
     Route: 048
     Dates: end: 20220705
  42. ASCORBIC ACID\IRON [Concomitant]
     Active Substance: ASCORBIC ACID\IRON
     Route: 065
  43. OMEGA-3 FATTY ACIDS [Concomitant]
     Active Substance: OMEGA-3 FATTY ACIDS
     Route: 048
     Dates: end: 20220705
  44. SODIUM CHLORIDE [Concomitant]
     Active Substance: SODIUM CHLORIDE
     Route: 065
  45. LEVOTHYROXINE SODIUM [Concomitant]
     Active Substance: LEVOTHYROXINE SODIUM
     Route: 065
  46. REFRESH CLASSIC [Concomitant]
     Active Substance: POLYVINYL ALCOHOL\POVIDONE
     Dosage: UNK UNK, QID (EVERY 4 HOURS WHILE AWAKE)
     Route: 047
  47. COVID-19 vaccine [Concomitant]
     Route: 065
     Dates: start: 20210324
  48. COVID-19 vaccine [Concomitant]
     Route: 065
     Dates: start: 20210420
  49. ILOTYCIN [Concomitant]
     Active Substance: ERYTHROMYCIN
     Route: 065
  50. NORCO [Concomitant]
     Active Substance: ACETAMINOPHEN\HYDROCODONE BITARTRATE
     Dosage: 330 MILLIGRAM, Q4H
     Route: 048
  51. LACTATED RINGERS SOLUTION [Concomitant]
     Active Substance: CALCIUM CHLORIDE\POTASSIUM CHLORIDE\SODIUM CHLORIDE\SODIUM LACTATE
     Route: 065
     Dates: start: 20240208
  52. DIPRIVAN [Concomitant]
     Active Substance: PROPOFOL
     Route: 065
     Dates: start: 20240208
  53. DEXAMETHASONE SODIUM PHOSPHATE [Concomitant]
     Active Substance: DEXAMETHASONE SODIUM PHOSPHATE
     Route: 065
     Dates: start: 20240208
  54. PRECEDEX [Concomitant]
     Active Substance: DEXMEDETOMIDINE HYDROCHLORIDE
     Route: 065
     Dates: start: 20240208
  55. PHENYLEPHRINE [Concomitant]
     Active Substance: PHENYLEPHRINE
     Route: 065
     Dates: start: 20240208
  56. SUBLIMAZE [Concomitant]
     Active Substance: FENTANYL CITRATE
     Route: 065
     Dates: start: 20240208
  57. VERSED [Concomitant]
     Active Substance: MIDAZOLAM HYDROCHLORIDE
     Route: 065
     Dates: start: 20240208
  58. PROPOFOL [Concomitant]
     Active Substance: PROPOFOL
     Route: 065
     Dates: start: 20240208
  59. THROMBIN [Concomitant]
     Active Substance: THROMBIN
     Route: 047
     Dates: start: 20240208
  60. ALCAINE [Concomitant]
     Active Substance: PROPARACAINE HYDROCHLORIDE
     Route: 047
     Dates: start: 20240208
  61. BSS [Concomitant]
     Active Substance: CALCIUM CHLORIDE\MAGNESIUM CHLORIDE\POTASSIUM CHLORIDE\SODIUM ACETATE\SODIUM CHLORIDE\SODIUM CITRATE
     Route: 047
     Dates: start: 20240208
  62. TOBRADEX [Concomitant]
     Active Substance: DEXAMETHASONE\TOBRAMYCIN
     Route: 065
  63. CYKLOKAPRON [Concomitant]
     Active Substance: TRANEXAMIC ACID
     Route: 065
  64. GELATIN [Concomitant]
     Active Substance: GELATIN
     Route: 065
  65. DECADRON [Concomitant]
     Active Substance: DEXAMETHASONE
     Route: 065
     Dates: start: 20240208, end: 20240208

REACTIONS (17)
  - Endocrine ophthalmopathy [Unknown]
  - Polyglandular autoimmune syndrome type II [Unknown]
  - Muscle infarction [Unknown]
  - Deafness neurosensory [Unknown]
  - Mixed deafness [Unknown]
  - Osteopenia [Unknown]
  - Hyponatraemia [Unknown]
  - Tenosynovitis stenosans [Unknown]
  - Blood alkaline phosphatase increased [Unknown]
  - Hormone replacement therapy [Unknown]
  - Otosclerosis [Unknown]
  - Diabetic retinopathy [Unknown]
  - Blood pressure decreased [Unknown]
  - Nausea [Unknown]
  - Muscle spasms [Unknown]
  - Fatigue [Unknown]
  - Tinnitus [Unknown]

NARRATIVE: CASE EVENT DATE: 20201214
